FAERS Safety Report 13205615 (Version 1)
Quarter: 2017Q1

REPORT INFORMATION
  Report Type: Spontaneous
  Country: ES (occurrence: ES)
  Receive Date: 20170209
  Receipt Date: 20170209
  Transmission Date: 20170428
  Serious: Yes (Other)
  Sender: FDA-Public Use
  Company Number: ES-ASTELLAS-2016US037099

PATIENT
  Age: 79 Year
  Sex: Male

DRUGS (4)
  1. XTANDI [Suspect]
     Active Substance: ENZALUTAMIDE
     Route: 048
  2. BICALUTAMIDE. [Concomitant]
     Active Substance: BICALUTAMIDE
     Indication: PROSTATE CANCER
     Dosage: UNK UNK, UNKNOWN FREQ.(3 YEARS)
     Route: 065
     Dates: start: 201301
  3. XTANDI [Suspect]
     Active Substance: ENZALUTAMIDE
     Indication: PROSTATE CANCER
     Route: 048
     Dates: start: 20160309
  4. LEUPRORELIN [Concomitant]
     Active Substance: LEUPROLIDE ACETATE
     Indication: PROSTATE CANCER
     Dosage: UNK UNK, UNKNOWN FREQ. (TWICE YEARLY) (3 YEARS)
     Route: 065
     Dates: start: 201301

REACTIONS (5)
  - Drug effect incomplete [Unknown]
  - Balance disorder [Unknown]
  - Asthenia [Recovered/Resolved]
  - Intestinal perforation [Unknown]
  - Dizziness [Unknown]

NARRATIVE: CASE EVENT DATE: 201609
